FAERS Safety Report 20940001 (Version 2)
Quarter: 2022Q3

REPORT INFORMATION
  Report Type: Spontaneous
  Country: GB (occurrence: GB)
  Receive Date: 20220609
  Receipt Date: 20220706
  Transmission Date: 20221027
  Serious: Yes (Other)
  Sender: FDA-Public Use
  Company Number: GB-UCBSA-2022032050

PATIENT
  Age: 0 Year
  Sex: Female
  Weight: 2.29 kg

DRUGS (15)
  1. CIMZIA [Suspect]
     Active Substance: CERTOLIZUMAB PEGOL
     Indication: Psoriasis
     Dosage: 400 MILLIGRAM, EV 2 WEEKS(QOW)
     Route: 064
     Dates: start: 20210908
  2. CIMZIA [Suspect]
     Active Substance: CERTOLIZUMAB PEGOL
     Dosage: 200 MILLIGRAM, EV 2 WEEKS(QOW)
     Route: 064
     Dates: end: 202201
  3. CIMZIA [Suspect]
     Active Substance: CERTOLIZUMAB PEGOL
     Dosage: 400 MILLIGRAM, EV 2 WEEKS(QOW)
     Route: 064
     Dates: end: 20220524
  4. CIMZIA [Suspect]
     Active Substance: CERTOLIZUMAB PEGOL
     Dosage: 400 MILLIGRAM, EV 2 WEEKS(QOW)
     Route: 063
     Dates: end: 20220524
  5. ASPIRIN [Concomitant]
     Active Substance: ASPIRIN
     Indication: Body mass index increased
     Dosage: 75 MILLIGRAM, ONCE DAILY (QD)
     Route: 064
     Dates: start: 20210906, end: 20220222
  6. ASPIRIN [Concomitant]
     Active Substance: ASPIRIN
     Dosage: 75 MILLIGRAM, ONCE DAILY (QD)
     Route: 063
     Dates: start: 20220222
  7. METRONIDAZOLE [Concomitant]
     Active Substance: METRONIDAZOLE
     Indication: Infection
     Dosage: UNK
     Route: 063
     Dates: start: 20220503, end: 20220508
  8. DALTEPARIN [Concomitant]
     Active Substance: DALTEPARIN
     Indication: Anticoagulant therapy
     Dosage: 7500 UNITS, ONCE DAILY (QD)
     Route: 063
     Dates: start: 20220223, end: 20220307
  9. BUPIVACAINE;MORPHINE [Concomitant]
     Indication: Spinal anaesthesia
     Dosage: UNK
     Route: 064
     Dates: start: 20220222, end: 20220222
  10. BUPIVACAINE;MORPHINE [Concomitant]
     Dosage: UNK
     Route: 063
     Dates: start: 20220222, end: 20220222
  11. ACETAMINOPHEN [Concomitant]
     Active Substance: ACETAMINOPHEN
     Indication: Pain management
     Dosage: 1 GRAM, ONCE DAILY (QD)
     Route: 064
     Dates: start: 20220222, end: 20220222
  12. ACETAMINOPHEN [Concomitant]
     Active Substance: ACETAMINOPHEN
     Dosage: 1 GRAM, ONCE DAILY (QD)
     Route: 063
     Dates: start: 20220222, end: 20220225
  13. FLUCLOXACILLIN [Concomitant]
     Active Substance: FLUCLOXACILLIN
     Indication: Postoperative wound infection
     Dosage: UNK
     Route: 063
     Dates: start: 20220307, end: 20220318
  14. PFIZER-BIONTECH COVID-19 VACCINE [Concomitant]
     Active Substance: TOZINAMERAN
     Indication: COVID-19 immunisation
     Dosage: UNK
     Dates: start: 20210626, end: 20211113
  15. TREMFYA [Concomitant]
     Active Substance: GUSELKUMAB
     Indication: Psoriasis
     Dosage: UNK
     Dates: start: 20190417, end: 20210505

REACTIONS (3)
  - Low birth weight baby [Unknown]
  - Maternal exposure during pregnancy [Unknown]
  - Maternal exposure during breast feeding [Unknown]

NARRATIVE: CASE EVENT DATE: 20210908
